FAERS Safety Report 9548964 (Version 1)
Quarter: 2013Q3

REPORT INFORMATION
  Report Type: Spontaneous
  Country: US (occurrence: None)
  Receive Date: 20130724
  Receipt Date: 20130724
  Transmission Date: 20140515
  Serious: Yes (Other)
  Sender: FDA-Public Use
  Company Number: PHEH2012US021778

PATIENT
  Age: 35 Year
  Sex: Male

DRUGS (3)
  1. FANAPT (ILOPERIDONE) UNKNOWN [Suspect]
     Indication: BIPOLAR DISORDER
     Route: 048
     Dates: start: 20120821, end: 20121019
  2. DEPAKOTE (VALPROATE SEMISODIUM) , 2500 MG [Concomitant]
  3. SEROQUEL XR [Concomitant]

REACTIONS (2)
  - Aggression [None]
  - Agitation [None]
